FAERS Safety Report 10641105 (Version 6)
Quarter: 2015Q2

REPORT INFORMATION
  Report Type: Spontaneous
  Country: US (occurrence: US)
  Receive Date: 20141209
  Receipt Date: 20150626
  Transmission Date: 20150821
  Serious: Yes (Hospitalization, Other)
  Sender: FDA-Public Use
  Company Number: US-ABBVIE-14P-163-1314297-00

PATIENT
  Sex: Female

DRUGS (2)
  1. CREON [Suspect]
     Active Substance: PANCRELIPASE AMYLASE\PANCRELIPASE LIPASE\PANCRELIPASE PROTEASE
     Indication: PRODUCT USED FOR UNKNOWN INDICATION
     Route: 065
  2. MORPHINE [Concomitant]
     Active Substance: MORPHINE
     Indication: PAIN
     Route: 065

REACTIONS (24)
  - Renal failure [Unknown]
  - Unevaluable event [Unknown]
  - Urethral stenosis [Unknown]
  - Nausea [Unknown]
  - Inappropriate schedule of drug administration [Unknown]
  - Pain [Unknown]
  - Fatigue [Unknown]
  - Renal disorder [Unknown]
  - Hypoxia [Not Recovered/Not Resolved]
  - Malaise [Recovering/Resolving]
  - Dehydration [Unknown]
  - Headache [Unknown]
  - Dysuria [Unknown]
  - Anxiety [Unknown]
  - Diarrhoea [Recovering/Resolving]
  - Hospitalisation [Unknown]
  - Dysuria [Recovered/Resolved]
  - Malaise [Unknown]
  - Vomiting [Unknown]
  - Fatigue [Unknown]
  - Blood pressure abnormal [Unknown]
  - Pneumonia [Unknown]
  - Incorrect dose administered [Unknown]
  - Inadequate diet [Unknown]

NARRATIVE: CASE EVENT DATE: 201411
